FAERS Safety Report 7525247-7 (Version None)
Quarter: 2011Q2

REPORT INFORMATION
  Report Type: 
  Country: None (occurrence: None)
  Receive Date: 20110602
  Receipt Date: 20110602
  Transmission Date: 20111010
  Serious: No
  Sender: FDA-Public Use
  Company Number: None

PATIENT
  Sex: Male
  Weight: 99.7913 kg

DRUGS (1)
  1. LUNESTA [Suspect]
     Indication: INSOMNIA
     Dosage: 30 TABLETS 1 PER DAY
     Dates: start: 20110412

REACTIONS (1)
  - DYSGEUSIA [None]
